FAERS Safety Report 8436740-7 (Version None)
Quarter: 2012Q2

REPORT INFORMATION
  Report Type: 
  Country: None (occurrence: None)
  Receive Date: 20120614
  Receipt Date: 20120604
  Transmission Date: 20120825
  Serious: Yes (Hospitalization)
  Sender: FDA-Public Use
  Company Number: US-MERCK-1103USA03922

PATIENT
  Age: 57 Year
  Sex: Female
  Weight: 54 kg

DRUGS (11)
  1. FOSAMAX [Suspect]
     Route: 048
  2. COREG [Concomitant]
     Indication: HYPERTENSION
     Route: 048
  3. FOSAMAX [Suspect]
     Route: 048
     Dates: start: 19970101, end: 20020101
  4. CALCIUM CARBONATE [Concomitant]
     Route: 065
     Dates: start: 19900101
  5. DYNACIRC CR [Concomitant]
     Indication: HYPERTENSION
     Route: 048
  6. CALTRATE + D [Concomitant]
     Indication: OSTEOPOROSIS
     Route: 048
  7. BONIVA [Suspect]
     Indication: OSTEOPOROSIS
     Route: 048
     Dates: start: 20060101, end: 20090401
  8. FOSAMAX [Suspect]
     Indication: OSTEOPOROSIS
     Route: 048
     Dates: start: 20020101, end: 20060201
  9. CALCIUM (UNSPECIFIED) AND VITAMIN D (UNSPECIFIED) [Concomitant]
     Route: 065
     Dates: start: 19900101
  10. CITRACAL [Concomitant]
     Route: 065
     Dates: start: 19900101
  11. ACTONEL [Concomitant]
     Indication: OSTEOPOROSIS
     Route: 048

REACTIONS (51)
  - GINGIVAL DISORDER [None]
  - RHINITIS ALLERGIC [None]
  - RECTOCELE [None]
  - HYPERCHOLESTEROLAEMIA [None]
  - ANXIETY [None]
  - EXOSTOSIS [None]
  - BACK PAIN [None]
  - CONSTIPATION [None]
  - ASTHENIA [None]
  - HEPATIC ENZYME INCREASED [None]
  - EYE INFLAMMATION [None]
  - PRURITUS [None]
  - SPINAL OSTEOARTHRITIS [None]
  - ORAL DISORDER [None]
  - OESOPHAGITIS [None]
  - THROMBOCYTOSIS [None]
  - INFECTION [None]
  - CONJUNCTIVITIS [None]
  - BLOOD BLISTER [None]
  - FEMUR FRACTURE [None]
  - AORTIC CALCIFICATION [None]
  - FIBROMA [None]
  - THYROID NEOPLASM [None]
  - CHOLELITHIASIS [None]
  - FALL [None]
  - HEPATIC CIRRHOSIS [None]
  - GASTROOESOPHAGEAL REFLUX DISEASE [None]
  - ATROPHIC VULVOVAGINITIS [None]
  - TRANSAMINASES INCREASED [None]
  - STRESS URINARY INCONTINENCE [None]
  - INSOMNIA [None]
  - BONE LOSS [None]
  - BREAST MASS [None]
  - CHEST PAIN [None]
  - OSTEOPENIA [None]
  - VITAMIN D DEFICIENCY [None]
  - NASAL CONGESTION [None]
  - HYPOTENSION [None]
  - ANAEMIA POSTOPERATIVE [None]
  - ANAEMIA OF CHRONIC DISEASE [None]
  - ARTERIOSCLEROSIS [None]
  - PERIODONTITIS [None]
  - GLOMERULAR FILTRATION RATE DECREASED [None]
  - TRIGGER FINGER [None]
  - SPONDYLOLISTHESIS [None]
  - CYSTOCELE [None]
  - GOITRE [None]
  - SEASONAL ALLERGY [None]
  - VENTRICULAR EXTRASYSTOLES [None]
  - SPINAL COMPRESSION FRACTURE [None]
  - NAUSEA [None]
